FAERS Safety Report 8842404 (Version 11)
Quarter: 2014Q1

REPORT INFORMATION
  Report Type: Spontaneous
  Country: US (occurrence: US)
  Receive Date: 20121016
  Receipt Date: 20140117
  Transmission Date: 20141002
  Serious: Yes (Hospitalization, Disabling, Other)
  Sender: FDA-Public Use
  Company Number: US-009507513-1210USA006319

PATIENT
  Sex: Female
  Weight: 66.44 kg

DRUGS (2)
  1. FOSAMAX [Suspect]
     Indication: OSTEOPOROSIS
     Dosage: 70 MG, UNK
     Route: 048
     Dates: start: 20020901, end: 20040601
  2. BONIVA [Suspect]
     Indication: OSTEOPOROSIS PROPHYLAXIS
     Dosage: 150 MG, UNK
     Route: 048
     Dates: start: 20051201, end: 20100601

REACTIONS (22)
  - Femur fracture [Not Recovered/Not Resolved]
  - Intramedullary rod insertion [Not Recovered/Not Resolved]
  - Femur fracture [Not Recovered/Not Resolved]
  - Intramedullary rod insertion [Not Recovered/Not Resolved]
  - Osteoporosis [Not Recovered/Not Resolved]
  - Multiple fractures [Not Recovered/Not Resolved]
  - Femur fracture [Not Recovered/Not Resolved]
  - Low turnover osteopathy [Not Recovered/Not Resolved]
  - Hypertension [Unknown]
  - Type 2 diabetes mellitus [Unknown]
  - Hypercholesterolaemia [Unknown]
  - Osteoarthritis [Unknown]
  - Urinary tract infection [Unknown]
  - Surgical skin tear [Unknown]
  - Mitral valve prolapse [Unknown]
  - Breast cyst [Unknown]
  - Bundle branch block right [Unknown]
  - Breast operation [Unknown]
  - Anaemia [Recovered/Resolved]
  - Infectious mononucleosis [Unknown]
  - Hand fracture [Unknown]
  - Fall [Unknown]
